FAERS Safety Report 9290857 (Version 2)
Quarter: 2013Q2

REPORT INFORMATION
  Report Type: Not Available
  Country: FR (occurrence: FR)
  Receive Date: 20130515
  Receipt Date: 20130604
  Transmission Date: 20140414
  Serious: Yes (Hospitalization)
  Sender: FDA-Public Use
  Company Number: FR-NAPPMUNDI-GBR-2013-0013917

PATIENT
  Age: 90 Year
  Sex: Female

DRUGS (9)
  1. OXYCODONE HCL PR TABLET 10 MG [Suspect]
     Indication: PAIN
     Dosage: 10 MG, BID
     Route: 048
     Dates: start: 20130409, end: 20130418
  2. DOLIPRANE [Suspect]
     Dosage: 1 G, Q6H
     Route: 048
     Dates: start: 20130409, end: 20130418
  3. FLUINDIONE [Concomitant]
     Dosage: 20 MG, UNK
  4. RISEDRONATE SODIUM [Concomitant]
  5. CACIT VITAMINE D3 [Concomitant]
  6. ALPRAZOLAM [Concomitant]
     Dosage: 0.5 MG, UNK
  7. TRIMEBUTINE [Concomitant]
     Dosage: 20 MG, UNK
  8. PARACETAMOL [Concomitant]
     Dosage: 500 MG, UNK
  9. FENTANYL [Concomitant]
     Dosage: 25 MCG, UNK

REACTIONS (2)
  - Hepatocellular injury [Recovered/Resolved]
  - Cholestasis [Recovering/Resolving]
